FAERS Safety Report 20631521 (Version 1)
Quarter: 2022Q1

REPORT INFORMATION
  Report Type: Spontaneous
  Country: US (occurrence: None)
  Receive Date: 20220323
  Receipt Date: 20220323
  Transmission Date: 20220423
  Serious: No
  Sender: FDA-Public Use
  Company Number: None

PATIENT
  Sex: Female

DRUGS (2)
  1. BRIMONIDINE [Suspect]
     Active Substance: BRIMONIDINE TARTRATE
     Indication: Glaucoma
     Dosage: FREQUENCY : TWICE A DAY;?
     Route: 031
     Dates: start: 2021, end: 2021
  2. BETIMOL [Suspect]
     Active Substance: TIMOLOL
     Indication: Glaucoma
     Dosage: FREQUENCY : TWICE A DAY;?
     Route: 031
     Dates: start: 2021, end: 2021

REACTIONS (1)
  - Therapy non-responder [None]

NARRATIVE: CASE EVENT DATE: 20210101
